FAERS Safety Report 24419120 (Version 2)
Quarter: 2024Q4

REPORT INFORMATION
  Report Type: Report from Study
  Country: US (occurrence: US)
  Receive Date: 20241009
  Receipt Date: 20241018
  Transmission Date: 20250114
  Serious: No
  Sender: ROCHE
  Company Number: US-ROCHE-3503119

PATIENT
  Age: 45 Year
  Sex: Male

DRUGS (4)
  1. ACTIVASE [Suspect]
     Active Substance: ALTEPLASE
     Indication: Cerebral infarction
     Dosage: DATE OF SERVICE: 12/NOV/2021
     Route: 065
  2. ACTIVASE [Suspect]
     Active Substance: ALTEPLASE
     Indication: Transient ischaemic attack
  3. TNKASE [Suspect]
     Active Substance: TENECTEPLASE
     Indication: Cerebral infarction
     Route: 065
  4. TNKASE [Suspect]
     Active Substance: TENECTEPLASE
     Indication: Transient ischaemic attack

REACTIONS (2)
  - Off label use [Unknown]
  - No adverse event [Unknown]
